FAERS Safety Report 9337276 (Version 1)
Quarter: 2013Q2

REPORT INFORMATION
  Report Type: Spontaneous
  Country: US (occurrence: US)
  Receive Date: 20130607
  Receipt Date: 20130607
  Transmission Date: 20140414
  Serious: Yes (Other)
  Sender: FDA-Public Use
  Company Number: US-PFIZER INC-2013169912

PATIENT
  Age: 74 Year
  Sex: Female

DRUGS (2)
  1. CARBOPLATIN [Suspect]
     Indication: SQUAMOUS CELL CARCINOMA OF THE ORAL CAVITY
     Dosage: 70 MG/M2, CYCLIC (EVERY 3 WEEKS)
     Dates: start: 20051205
  2. FLUOROURACIL [Suspect]
     Indication: SQUAMOUS CELL CARCINOMA OF THE ORAL CAVITY
     Dosage: 600 MG/M2, CYCLIC (EVERY 3 WEEKS)
     Dates: start: 20051205

REACTIONS (3)
  - Dermatitis [Recovering/Resolving]
  - Mucosal inflammation [Recovering/Resolving]
  - Adhesion [Unknown]
